FAERS Safety Report 11103868 (Version 1)
Quarter: 2015Q2

REPORT INFORMATION
  Report Type: Spontaneous
  Country: US (occurrence: US)
  Receive Date: 20150511
  Receipt Date: 20150511
  Transmission Date: 20150821
  Serious: Yes (Other)
  Sender: FDA-Public Use
  Company Number: US-LPDUSPRD-20150217

PATIENT
  Age: 72 Year
  Sex: Female

DRUGS (1)
  1. INJECTAFER [Suspect]
     Active Substance: FERRIC CARBOXYMALTOSE
     Dosage: 750 MG IN 250ML NS OVER 1 HOUR
     Route: 042
     Dates: start: 20150408, end: 20150408

REACTIONS (5)
  - Dyspnoea [Unknown]
  - Flushing [Unknown]
  - Heart rate increased [Unknown]
  - Chest pain [Unknown]
  - Oxygen saturation decreased [Unknown]

NARRATIVE: CASE EVENT DATE: 20150408
